FAERS Safety Report 8986944 (Version 2)
Quarter: 2014Q1

REPORT INFORMATION
  Report Type: Spontaneous
  Country: US (occurrence: None)
  Receive Date: 20121120
  Receipt Date: 20140113
  Transmission Date: 20141002
  Serious: Yes (Hospitalization)
  Sender: FDA-Public Use
  Company Number: 32460

PATIENT
  Age: 74 Year
  Sex: Female
  Weight: 123 kg

DRUGS (14)
  1. GLASSIA [Suspect]
     Indication: ALPHA-1 ANTI-TRYPSIN DEFICIENCY
     Route: 042
     Dates: start: 20110320
  2. HUMOLOG [Concomitant]
  3. LANTUS [Concomitant]
  4. SPIREVA [Concomitant]
  5. PROAIR [Concomitant]
  6. ALBUTEROL INHALER [Concomitant]
  7. VITAMIN D [Concomitant]
  8. PREVACID [Concomitant]
  9. SYNTHROID [Concomitant]
  10. NEURONTIN [Concomitant]
  11. NORVASC [Concomitant]
  12. LEVALO [Concomitant]
  13. MELOXICAM [Concomitant]
  14. REMERON [Concomitant]

REACTIONS (12)
  - Intestinal obstruction [None]
  - Abdominal hernia [None]
  - Poor venous access [None]
  - Wheezing [None]
  - Local swelling [None]
  - Blood pressure decreased [None]
  - Nausea [None]
  - Drug hypersensitivity [None]
  - Asthenia [None]
  - Dyspnoea [None]
  - Bronchitis [None]
  - Bronchiectasis [None]
